FAERS Safety Report 4872245-8 (Version None)
Quarter: 2005Q4

REPORT INFORMATION
  Report Type: 
  Country: None (occurrence: None)
  Receive Date: 20051201
  Receipt Date: 20050727
  Transmission Date: 20060501
  Serious: No
  Sender: FDA-Public Use
  Company Number: 2005PV000771

PATIENT
  Age: 68 Year
  Sex: Male
  Weight: 113.3993 kg

DRUGS (17)
  1. BYETTA [Suspect]
     Indication: DIABETES MELLITUS NON-INSULIN-DEPENDENT
     Dosage: 5 MCG;BID;SC
     Route: 058
     Dates: start: 20050627, end: 20050725
  2. CLONIDINE [Concomitant]
  3. GLYBURIDE [Concomitant]
  4. NORVASC [Concomitant]
  5. PREVACID [Concomitant]
  6. TRIAMTERENE AND HYDROCHLOROTHIAZIDE [Concomitant]
  7. ZESTRIL [Concomitant]
  8. REGLAN [Concomitant]
  9. AVANDIA [Concomitant]
  10. LIPITOR [Concomitant]
  11. NIASPAN [Concomitant]
  12. VITAMIN B-12 [Concomitant]
  13. VITAMIN B6 [Concomitant]
  14. VITAMIN E [Concomitant]
  15. FOLIC ACID [Concomitant]
  16. STOOL SOFTENER [Concomitant]
  17. ASPIRIN [Concomitant]

REACTIONS (5)
  - DECREASED APPETITE [None]
  - DIARRHOEA [None]
  - FLATULENCE [None]
  - HEADACHE [None]
  - NAUSEA [None]
